FAERS Safety Report 15170778 (Version 1)
Quarter: 2018Q3

REPORT INFORMATION
  Report Type: Spontaneous
  Country: US (occurrence: US)
  Receive Date: 20180622
  Receipt Date: 20180622
  Transmission Date: 20181010
  Serious: Yes (Other)
  Sender: FDA-Public Use
  Company Number: None

PATIENT
  Age: 49 Year
  Sex: Female
  Weight: 57.6 kg

DRUGS (1)
  1. MINOCYCLINE [Suspect]
     Active Substance: MINOCYCLINE\MINOCYCLINE HYDROCHLORIDE
     Indication: MASTITIS
     Route: 048
     Dates: start: 20180611, end: 20180622

REACTIONS (7)
  - Intraocular pressure test [None]
  - Eye pain [None]
  - Intracranial pressure increased [None]
  - Headache [None]
  - Dizziness [None]
  - Pain [None]
  - Vertigo [None]

NARRATIVE: CASE EVENT DATE: 20180622
